FAERS Safety Report 4385989-1 (Version None)
Quarter: 2004Q2

REPORT INFORMATION
  Report Type: 
  Country: None (occurrence: None)
  Receive Date: 20040628
  Receipt Date: 20040618
  Transmission Date: 20050107
  Serious: Yes (Disabling)
  Sender: FDA-Public Use
  Company Number: US-MERCK-0406USA01931

PATIENT
  Age: 54 Year
  Sex: Female

DRUGS (1)
  1. MAXALT [Suspect]
     Indication: MIGRAINE
     Route: 048

REACTIONS (2)
  - DRUG INEFFECTIVE [None]
  - MEDICATION ERROR [None]
